FAERS Safety Report 6639914-0 (Version None)
Quarter: 2010Q1

REPORT INFORMATION
  Report Type: 
  Country: None (occurrence: None)
  Receive Date: 20100315
  Receipt Date: 20100308
  Transmission Date: 20100710
  Serious: Yes (Hospitalization)
  Sender: FDA-Public Use
  Company Number: 8047504

PATIENT
  Sex: Female
  Weight: 50.5 kg

DRUGS (8)
  1. CERTOLIZUMAB PEGOL (CDP870) [Suspect]
     Indication: RHEUMATOID ARTHRITIS
     Dosage: SUBCUTANEOUS
     Route: 058
     Dates: start: 20090223, end: 20090518
  2. METHOTREXATE [Concomitant]
  3. PREDNISOLONE [Concomitant]
  4. FOLIC ACID [Concomitant]
  5. ISONIAZID [Concomitant]
  6. ALENDRONATE SODIUM [Concomitant]
  7. TEPRENONE [Concomitant]
  8. LOXOPROFEN SODIUM [Concomitant]

REACTIONS (14)
  - ARTHRALGIA [None]
  - BACTERIAL INFECTION [None]
  - DEHYDRATION [None]
  - FIBULA FRACTURE [None]
  - HEPATIC FUNCTION ABNORMAL [None]
  - JOINT SWELLING [None]
  - POST PROCEDURAL INFECTION [None]
  - PSEUDOMONAS INFECTION [None]
  - PYELONEPHRITIS [None]
  - RENAL IMPAIRMENT [None]
  - SOFT TISSUE INFECTION [None]
  - STAPHYLOCOCCAL INFECTION [None]
  - UROSEPSIS [None]
  - VOMITING [None]
